FAERS Safety Report 8835617 (Version 2)
Quarter: 2012Q4

REPORT INFORMATION
  Report Type: 
  Country: MX (occurrence: MX)
  Receive Date: 20121011
  Receipt Date: 20121107
  Transmission Date: 20130627
  Serious: Yes (Death, Hospitalization)
  Sender: FDA-Public Use
  Company Number: PHHY2012MX088981

PATIENT
  Sex: Male

DRUGS (2)
  1. GALVUS [Suspect]
     Dosage: 50 mg, UNK
  2. TRILEPTAL [Suspect]
     Indication: EPILEPSY
     Dosage: 1.5 tablets (300mg) per day
     Dates: start: 201201, end: 201208

REACTIONS (2)
  - Death [Fatal]
  - Brain neoplasm malignant [Unknown]
